FAERS Safety Report 6064343-0 (Version None)
Quarter: 2009Q1

REPORT INFORMATION
  Report Type: 
  Country: None (occurrence: None)
  Receive Date: 20090204
  Receipt Date: 20090126
  Transmission Date: 20090719
  Serious: Yes (Other)
  Sender: FDA-Public Use
  Company Number: NL-ASTRAZENECA-2009AC00450

PATIENT
  Age: 91 Year
  Sex: Female

DRUGS (5)
  1. LOSEC MUPS [Suspect]
     Route: 048
     Dates: start: 20061130, end: 20071101
  2. ACETYLSALICYLZUUR [Suspect]
     Route: 048
     Dates: start: 20010101
  3. PREDNISOLONE [Suspect]
     Route: 048
     Dates: start: 20061130, end: 20070716
  4. PREDNISOLONE [Suspect]
     Dosage: 1 MG/ML
     Route: 048
     Dates: start: 20071013, end: 20071109
  5. BUMETANIDE [Suspect]
     Route: 048
     Dates: start: 20060101

REACTIONS (1)
  - BLINDNESS [None]
